FAERS Safety Report 8368958-6 (Version None)
Quarter: 2012Q2

REPORT INFORMATION
  Report Type: 
  Country: None (occurrence: None)
  Receive Date: 20120518
  Receipt Date: 20120508
  Transmission Date: 20120825
  Serious: Yes (Hospitalization)
  Sender: FDA-Public Use
  Company Number: US-ASTRAZENECA-2012SE25732

PATIENT
  Age: 44 Year
  Sex: Female

DRUGS (1)
  1. NEXIUM [Suspect]
     Route: 048

REACTIONS (6)
  - ABDOMINAL PAIN UPPER [None]
  - INTENTIONAL DRUG MISUSE [None]
  - APHAGIA [None]
  - INSOMNIA [None]
  - GASTRIC DISORDER [None]
  - MALAISE [None]
